FAERS Safety Report 6041374-8 (Version None)
Quarter: 2009Q1

REPORT INFORMATION
  Report Type: 
  Country: None (occurrence: None)
  Receive Date: 20090116
  Receipt Date: 20081008
  Transmission Date: 20090719
  Serious: No
  Sender: FDA-Public Use
  Company Number: US-BRISTOL-MYERS SQUIBB COMPANY-14362677

PATIENT
  Age: 18 Year
  Sex: Female
  Weight: 73 kg

DRUGS (2)
  1. ABILIFY [Suspect]
     Indication: BIPOLAR DISORDER
     Dosage: INITIATED AT 5MG
  2. YAZ [Concomitant]

REACTIONS (4)
  - FATIGUE [None]
  - HALLUCINATION, VISUAL [None]
  - INCREASED APPETITE [None]
  - WEIGHT INCREASED [None]
